FAERS Safety Report 19181446 (Version 1)
Quarter: 2021Q2

REPORT INFORMATION
  Report Type: Spontaneous
  Country: CA (occurrence: CA)
  Receive Date: 20210426
  Receipt Date: 20210426
  Transmission Date: 20210717
  Serious: Yes (Other)
  Sender: FDA-Public Use
  Company Number: CA-JNJFOC-20210443021

PATIENT
  Age: 50 Year
  Sex: Female

DRUGS (1)
  1. INFLIXIMAB, RECOMBINANT [Suspect]
     Active Substance: INFLIXIMAB
     Indication: ANKYLOSING SPONDYLITIS
     Route: 042

REACTIONS (11)
  - White blood cell count decreased [Unknown]
  - Product use issue [Unknown]
  - Nasopharyngitis [Unknown]
  - Conjunctivitis [Unknown]
  - Headache [Unknown]
  - Off label use [Unknown]
  - Malaise [Unknown]
  - Oropharyngeal pain [Unknown]
  - Intentional product use issue [Unknown]
  - Sinusitis [Unknown]
  - Urinary tract infection [Unknown]
